FAERS Safety Report 5257474-6 (Version None)
Quarter: 2007Q1

REPORT INFORMATION
  Report Type: 
  Country: None (occurrence: None)
  Receive Date: 20070307
  Receipt Date: 20060814
  Transmission Date: 20070707
  Serious: No
  Sender: FDA-Public Use
  Company Number: US-GLAXOSMITHKLINE-A0616543A

PATIENT
  Age: 49 Year
  Sex: Male

DRUGS (4)
  1. ROPINIROLE HCL [Suspect]
     Indication: RESTLESS LEGS SYNDROME
     Dosage: .25MG AS REQUIRED
     Route: 048
     Dates: start: 20060401
  2. DIAZEPAM [Concomitant]
  3. CYCLOBENZAPRINE HCL [Concomitant]
  4. FLUOXETINE [Concomitant]

REACTIONS (2)
  - DRUG INEFFECTIVE [None]
  - INSOMNIA [None]
